FAERS Safety Report 8535908-9 (Version None)
Quarter: 2012Q3

REPORT INFORMATION
  Report Type: 
  Country: None (occurrence: None)
  Receive Date: 20120725
  Receipt Date: 20120719
  Transmission Date: 20120928
  Serious: Yes (Other)
  Sender: FDA-Public Use
  Company Number: PHEH2012US014248

PATIENT
  Sex: Female
  Weight: 62.585 kg

DRUGS (1)
  1. RECLAST [Suspect]
     Dosage: UNK
     Route: 042
     Dates: start: 20110829

REACTIONS (3)
  - FALL [None]
  - STRESS FRACTURE [None]
  - LOWER LIMB FRACTURE [None]
